FAERS Safety Report 8829636 (Version 2)
Quarter: 2014Q3

REPORT INFORMATION
  Report Type: Report from Study
  Country: US (occurrence: US)
  Receive Date: 20121008
  Receipt Date: 20140909
  Transmission Date: 20150326
  Serious: Yes (Other)
  Sender: FDA-Public Use
  Company Number: US-ROCHE-1134877

PATIENT
  Sex: Male

DRUGS (7)
  1. TYLENOL [Concomitant]
     Active Substance: ACETAMINOPHEN
  2. DECADRON [Concomitant]
     Active Substance: DEXAMETHASONE
  3. KYTRIL [Concomitant]
     Active Substance: GRANISETRON HYDROCHLORIDE
     Route: 065
  4. RITUXAN [Suspect]
     Active Substance: RITUXIMAB
     Indication: B-CELL LYMPHOMA
     Dosage: 4 DOSE EVERY 6 MONTHS
     Route: 042
     Dates: start: 19990405
  5. ALLEGRA [Concomitant]
     Active Substance: FEXOFENADINE HYDROCHLORIDE
  6. RITUXAN [Suspect]
     Active Substance: RITUXIMAB
     Indication: NON-HODGKIN^S LYMPHOMA
  7. BENADRYL [Concomitant]
     Active Substance: DIPHENHYDRAMINE HYDROCHLORIDE

REACTIONS (18)
  - Tinnitus [Unknown]
  - Hyperhidrosis [Unknown]
  - Respiratory tract congestion [Unknown]
  - Mouth ulceration [Unknown]
  - Diarrhoea [Unknown]
  - Flushing [Unknown]
  - Vertigo [Unknown]
  - Polyuria [Unknown]
  - Cough [Unknown]
  - Fatigue [Unknown]
  - Constipation [Unknown]
  - Headache [Unknown]
  - Groin pain [Unknown]
  - Arthritis [Unknown]
  - Osteopenia [Unknown]
  - Deafness [Unknown]
  - Nasal congestion [Unknown]
  - Dyspnoea [Unknown]
